FAERS Safety Report 14146396 (Version 1)
Quarter: 2017Q4

REPORT INFORMATION
  Report Type: Spontaneous
  Country: US (occurrence: None)
  Receive Date: 20171031
  Receipt Date: 20171031
  Transmission Date: 20180321
  Serious: Yes (Hospitalization)
  Sender: FDA-Public Use
  Company Number: None

PATIENT
  Age: 22 Year
  Sex: Male
  Weight: 86.2 kg

DRUGS (2)
  1. HALOPERIDOL. [Suspect]
     Active Substance: HALOPERIDOL
     Indication: SCHIZOPHRENIA
     Route: 048
     Dates: start: 20170921, end: 20170922
  2. HALOPERIDOL. [Suspect]
     Active Substance: HALOPERIDOL
     Indication: DEPRESSION
     Route: 048
     Dates: start: 20170921, end: 20170922

REACTIONS (13)
  - Drooling [None]
  - Respiratory depression [None]
  - Dysphagia [None]
  - Cough [None]
  - Wheezing [None]
  - Condition aggravated [None]
  - Stridor [None]
  - Speech disorder [None]
  - Protrusion tongue [None]
  - Blood pressure systolic increased [None]
  - Dyspnoea [None]
  - Tardive dyskinesia [None]
  - Emotional distress [None]

NARRATIVE: CASE EVENT DATE: 20170922
